FAERS Safety Report 11578880 (Version 1)
Quarter: 2015Q3

REPORT INFORMATION
  Report Type: Spontaneous
  Country: US (occurrence: US)
  Receive Date: 20150916
  Receipt Date: 20150916
  Transmission Date: 20151125
  Serious: No
  Sender: FDA-Public Use
  Company Number: US-ELI_LILLY_AND_COMPANY-US201307005883

PATIENT
  Age: 72 Year
  Sex: Male

DRUGS (3)
  1. HUMALOG MIX50/50 [Suspect]
     Active Substance: INSULIN LISPRO
     Indication: DIABETES MELLITUS
     Dosage: 60 U, EACH MORNING
  2. HUMALOG MIX50/50 [Suspect]
     Active Substance: INSULIN LISPRO
     Dosage: 20 U, QD
  3. HUMALOG MIX50/50 [Suspect]
     Active Substance: INSULIN LISPRO
     Dosage: 60 U, EACH EVENING

REACTIONS (2)
  - Blood glucose increased [Unknown]
  - Underdose [Unknown]

NARRATIVE: CASE EVENT DATE: 20130714
